FAERS Safety Report 17891438 (Version 3)
Quarter: 2021Q3

REPORT INFORMATION
  Report Type: Spontaneous
  Country: US (occurrence: US)
  Receive Date: 20200612
  Receipt Date: 20210707
  Transmission Date: 20211014
  Serious: Yes (Other)
  Sender: FDA-Public Use
  Company Number: US-GILEAD-2020-0472356

PATIENT
  Age: 33 Year
  Sex: Female
  Weight: 58.96 kg

DRUGS (48)
  1. DEXAMETHASONE. [Concomitant]
     Active Substance: DEXAMETHASONE
  2. PENICILLIN NOS [Concomitant]
     Active Substance: PENICILLIN
  3. NORVIR [Concomitant]
     Active Substance: RITONAVIR
  4. PREZISTA [Concomitant]
     Active Substance: DARUNAVIR ETHANOLATE
  5. VIREAD [Suspect]
     Active Substance: TENOFOVIR DISOPROXIL FUMARATE
     Dosage: UNK
     Route: 065
     Dates: start: 2013
  6. TRUVADA [Suspect]
     Active Substance: EMTRICITABINE\TENOFOVIR DISOPROXIL FUMARATE
     Dosage: UNK
     Route: 065
     Dates: start: 2008, end: 2013
  7. AMITRIPTYLINE [Concomitant]
     Active Substance: AMITRIPTYLINE
  8. AMOXICILLIN. [Concomitant]
     Active Substance: AMOXICILLIN
  9. CISPLATIN. [Concomitant]
     Active Substance: CISPLATIN
  10. DUEXIS [Concomitant]
     Active Substance: FAMOTIDINE\IBUPROFEN
  11. ESOMEPRAZOLE. [Concomitant]
     Active Substance: ESOMEPRAZOLE MAGNESIUM
  12. LITHIUM. [Concomitant]
     Active Substance: LITHIUM
  13. METHYLPREDNISOLONE. [Concomitant]
     Active Substance: METHYLPREDNISOLONE
  14. RANITIDINE. [Concomitant]
     Active Substance: RANITIDINE
  15. EPIVIR [Concomitant]
     Active Substance: LAMIVUDINE
  16. ACYCLOVIR [ACICLOVIR] [Concomitant]
     Active Substance: ACYCLOVIR
  17. ATORVASTATIN [Concomitant]
     Active Substance: ATORVASTATIN
  18. CYCLOPHOSPHAMIDE. [Concomitant]
     Active Substance: CYCLOPHOSPHAMIDE
  19. DEXLANSOPRAZOLE [Concomitant]
     Active Substance: DEXLANSOPRAZOLE
  20. EDECRIN [ETACRYNATE SODIUM] [Concomitant]
  21. FLEET LAXATIVE [Concomitant]
  22. LOVENOX [LEVOFLOXACIN] [Concomitant]
     Active Substance: LEVOFLOXACIN
  23. OMEPRAZOLE. [Concomitant]
     Active Substance: OMEPRAZOLE
  24. PANTOPRAZOLE [Concomitant]
     Active Substance: PANTOPRAZOLE
  25. REYATAZ [Concomitant]
     Active Substance: ATAZANAVIR SULFATE
  26. CIMETIDINE [Concomitant]
     Active Substance: CIMETIDINE
  27. HEPARIN [Concomitant]
     Active Substance: HEPARIN SODIUM
  28. LANSOPRAZOLE. [Concomitant]
     Active Substance: LANSOPRAZOLE
  29. ISENTRESS [Concomitant]
     Active Substance: RALTEGRAVIR POTASSIUM
  30. TRUVADA [Suspect]
     Active Substance: EMTRICITABINE\TENOFOVIR DISOPROXIL FUMARATE
     Indication: HIV INFECTION
     Dosage: UNK
     Route: 048
     Dates: start: 2008, end: 201912
  31. INDINAVIR [Concomitant]
     Active Substance: INDINAVIR
  32. PHENOBARBITAL. [Concomitant]
     Active Substance: PHENOBARBITAL
  33. COMBIVIR [Concomitant]
     Active Substance: LAMIVUDINE\ZIDOVUDINE
  34. VIREAD [Suspect]
     Active Substance: TENOFOVIR DISOPROXIL FUMARATE
     Indication: HIV INFECTION
     Dosage: UNK
     Route: 048
     Dates: start: 2018, end: 2018
  35. ATRIPLA [Suspect]
     Active Substance: EFAVIRENZ\EMTRICITABINE\TENOFOVIR DISOPROXIL FUMARATE
     Indication: HIV INFECTION
     Route: 048
  36. ASPIRIN (E.C.) [Concomitant]
     Active Substance: ASPIRIN
  37. MEDROXYPROGESTERONE ACETATE. [Concomitant]
     Active Substance: MEDROXYPROGESTERONE ACETATE
  38. DORAFEM [Concomitant]
     Active Substance: DOMPERIDONE\RABEPRAZOLE
  39. DYAZIDE [Concomitant]
     Active Substance: HYDROCHLOROTHIAZIDE\TRIAMTERENE
  40. KALETRA [Concomitant]
     Active Substance: LOPINAVIR\RITONAVIR
  41. ACETAMINOPHEN. [Concomitant]
     Active Substance: ACETAMINOPHEN
  42. CORTISONE [Concomitant]
     Active Substance: CORTISONE
  43. FAMOTIDINE. [Concomitant]
     Active Substance: FAMOTIDINE
  44. LEVOTHYROXINE. [Concomitant]
     Active Substance: LEVOTHYROXINE
  45. RETROVIR [Concomitant]
     Active Substance: ZIDOVUDINE
  46. INSULIN [Concomitant]
     Active Substance: INSULIN NOS
  47. BACTRIM [Concomitant]
     Active Substance: SULFAMETHOXAZOLE\TRIMETHOPRIM
  48. INTERFERON ALFA NOS [Concomitant]
     Active Substance: INTERFERON ALFA-2A OR INTERFERON ALFA-2B

REACTIONS (10)
  - Chronic kidney disease [Unknown]
  - Fatigue [Unknown]
  - Emotional distress [Unknown]
  - Bone pain [Not Recovered/Not Resolved]
  - Arthralgia [Not Recovered/Not Resolved]
  - Tooth loss [Unknown]
  - Toothache [Recovered/Resolved]
  - Asthenia [Unknown]
  - Pain [Unknown]
  - End stage renal disease [Not Recovered/Not Resolved]

NARRATIVE: CASE EVENT DATE: 2009
